FAERS Safety Report 18532044 (Version 2)
Quarter: 2020Q4

REPORT INFORMATION
  Report Type: Spontaneous
  Country: PL (occurrence: PL)
  Receive Date: 20201123
  Receipt Date: 20201211
  Transmission Date: 20210114
  Serious: Yes (Other)
  Sender: FDA-Public Use
  Company Number: PL-ROCHE-2717081

PATIENT
  Age: 22 Year
  Sex: Male
  Weight: 63 kg

DRUGS (3)
  1. MABTHERA [Suspect]
     Active Substance: RITUXIMAB
     Indication: PRODUCT USED FOR UNKNOWN INDICATION
     Dosage: 2.5 YEARS
     Route: 065
  2. HEMLIBRA [Suspect]
     Active Substance: EMICIZUMAB-KXWH
     Indication: FACTOR VIII DEFICIENCY
     Dosage: LOADING DOSE: 3 MG /KG BODY WEIGHT (189 MG) - 4 DOSES?EVERY OTHER WEEK
     Route: 058
     Dates: start: 202001
  3. HEMLIBRA [Suspect]
     Active Substance: EMICIZUMAB-KXWH
     Dosage: MAINTENANCE DOSE: 3 MG/KG BW 1 EVERY 2 WEEKS (189 MG/DOSE I.E. 1.9 ML - 2 INJECTIONS)
     Route: 065
     Dates: start: 2020

REACTIONS (2)
  - Haemorrhage [Unknown]
  - Arthropathy [Unknown]
